FAERS Safety Report 10367364 (Version 1)
Quarter: 2014Q1

REPORT INFORMATION
  Report Type: Spontaneous
  Country: US (occurrence: None)
  Receive Date: 20140306
  Receipt Date: 20140306
  Transmission Date: 20141002
  Serious: Yes (Hospitalization)
  Sender: FDA-Public Use
  Company Number: 163-21880-13023681

PATIENT
  Age: 67 Year
  Sex: Male

DRUGS (8)
  1. REVLIMID [Suspect]
     Indication: PLASMA CELL MYELOMA
     Dosage: 10 MG, 28 IN 28 D, PO
     Route: 048
     Dates: start: 20120913
  2. ALLOPURINOL (ALLOPURINOL) [Concomitant]
  3. AMIODARONE HCL (AMIODARONE HYDROCHLORIDE) [Concomitant]
  4. BENAZEPRIL HCL (BENAZEPRIL HYDROCHLORIDE) [Concomitant]
  5. FUROSEMIDE (FUROSEMIDE) [Concomitant]
  6. LEVOTHYROXINE SODIUM (LEVOTHYROXINE SODIUM) [Concomitant]
  7. LYRICA (PREGABALIN) [Concomitant]
  8. WARFARIN SODIUM (WARFARIN SODIUM) [Concomitant]

REACTIONS (1)
  - Chest pain [None]
